FAERS Safety Report 17225038 (Version 3)
Quarter: 2020Q1

REPORT INFORMATION
  Report Type: Spontaneous
  Country: US (occurrence: US)
  Receive Date: 20200102
  Receipt Date: 20200124
  Transmission Date: 20200409
  Serious: Yes (Other)
  Sender: FDA-Public Use
  Company Number: US-AMGEN-USASP2019216397

PATIENT
  Age: 68 Year
  Sex: Female

DRUGS (2)
  1. ESTRACE [Concomitant]
     Active Substance: ESTRADIOL
  2. PROLIA [Suspect]
     Active Substance: DENOSUMAB
     Indication: OSTEOPOROSIS POSTMENOPAUSAL
     Dosage: UNK
     Route: 065
     Dates: start: 2015

REACTIONS (8)
  - Glaucoma [Unknown]
  - Herpes virus infection [Unknown]
  - Nausea [Not Recovered/Not Resolved]
  - Tinnitus [Not Recovered/Not Resolved]
  - Candida infection [Recovering/Resolving]
  - Weight increased [Unknown]
  - Herpes zoster [Unknown]
  - Dry eye [Unknown]

NARRATIVE: CASE EVENT DATE: 201912
